FAERS Safety Report 6050685-1 (Version None)
Quarter: 2009Q1

REPORT INFORMATION
  Report Type: 
  Country: None (occurrence: None)
  Receive Date: 20090121
  Receipt Date: 20090109
  Transmission Date: 20090719
  Serious: Yes (Hospitalization, Other)
  Sender: FDA-Public Use
  Company Number: 2009AL000173

PATIENT
  Age: 66 Year
  Sex: Female

DRUGS (4)
  1. CHLORPROMAZINE HCL [Suspect]
     Dosage: 50 MG; HS
  2. OLANZAPINE [Concomitant]
  3. DONEPEZIL HCL [Concomitant]
  4. RISPERIDONE [Concomitant]

REACTIONS (14)
  - AGITATION [None]
  - CATATONIA [None]
  - COGNITIVE DISORDER [None]
  - DEMENTIA [None]
  - DEPRESSED LEVEL OF CONSCIOUSNESS [None]
  - FEAR [None]
  - HYPERTONIA [None]
  - INSOMNIA [None]
  - NEUROLEPTIC MALIGNANT SYNDROME [None]
  - NO THERAPEUTIC RESPONSE [None]
  - PARKINSONISM [None]
  - PERSECUTORY DELUSION [None]
  - PYREXIA [None]
  - WHITE BLOOD CELL COUNT INCREASED [None]
